FAERS Safety Report 18898144 (Version 1)
Quarter: 2021Q1

REPORT INFORMATION
  Report Type: Spontaneous
  Country: US (occurrence: US)
  Receive Date: 20210213
  Receipt Date: 20210213
  Transmission Date: 20210420
  Serious: Yes (Hospitalization, Other)
  Sender: FDA-Public Use
  Company Number: None

PATIENT
  Sex: Male

DRUGS (2)
  1. FOLIC ACID; OMEGA POWER; TESTOST CYP INJ [Concomitant]
  2. METHOTREXATE. [Suspect]
     Active Substance: METHOTREXATE
     Indication: PSORIASIS
     Dosage: ?          OTHER FREQUENCY:EACH WEEK;?
     Route: 058
     Dates: start: 20160419

REACTIONS (2)
  - COVID-19 [None]
  - Stomatitis [None]
